FAERS Safety Report 25979551 (Version 2)
Quarter: 2025Q4

REPORT INFORMATION
  Report Type: Spontaneous
  Country: US (occurrence: US)
  Receive Date: 20251030
  Receipt Date: 20251202
  Transmission Date: 20260117
  Serious: Yes (Other)
  Sender: ROCHE
  Company Number: US-ROCHE-10000419177

PATIENT
  Age: 35 Year
  Sex: Female

DRUGS (3)
  1. XOLAIR PFS [Suspect]
     Active Substance: OMALIZUMAB
     Indication: Idiopathic urticaria
     Route: 058
     Dates: start: 202009
  2. XOLAIR PFS [Suspect]
     Active Substance: OMALIZUMAB
  3. HIZENTRA [Suspect]
     Active Substance: HUMAN IMMUNOGLOBULIN G
     Indication: Product used for unknown indication
     Route: 065

REACTIONS (8)
  - Dysphonia [Unknown]
  - Pruritus [Unknown]
  - Infusion site erythema [Unknown]
  - Nausea [Unknown]
  - Palpitations [Unknown]
  - Drug hypersensitivity [Unknown]
  - Throat tightness [Unknown]
  - Haemophagocytic lymphohistiocytosis [Unknown]

NARRATIVE: CASE EVENT DATE: 20251016
